FAERS Safety Report 20919681 (Version 1)
Quarter: 2022Q2

REPORT INFORMATION
  Report Type: Spontaneous
  Country: GB (occurrence: GB)
  Receive Date: 20220606
  Receipt Date: 20220606
  Transmission Date: 20220721
  Serious: Yes (Other)
  Sender: FDA-Public Use
  Company Number: None

PATIENT
  Age: 66 Year
  Sex: Female
  Weight: 63.04 kg

DRUGS (7)
  1. IBANDRONIC ACID [Suspect]
     Active Substance: IBANDRONIC ACID
     Indication: Osteoporosis
     Route: 048
     Dates: start: 20210912
  2. ASPIRIN [Concomitant]
     Active Substance: ASPIRIN
  3. BISOPROLOL [Concomitant]
     Active Substance: BISOPROLOL
  4. CITALOPRAM [Concomitant]
     Active Substance: CITALOPRAM HYDROBROMIDE
  5. CO-AMILOFRUSE [Concomitant]
     Active Substance: AMILORIDE\FUROSEMIDE
  6. CALCIUM CARBONATE\SODIUM ALGINATE\SODIUM BICARBONATE [Concomitant]
     Active Substance: CALCIUM CARBONATE\SODIUM ALGINATE\SODIUM BICARBONATE
  7. CROMOLYN SODIUM [Concomitant]
     Active Substance: CROMOLYN SODIUM

REACTIONS (3)
  - Ear pain [Recovered/Resolved]
  - Musculoskeletal chest pain [Recovered/Resolved]
  - Joint stiffness [Recovered/Resolved]

NARRATIVE: CASE EVENT DATE: 20210912
